FAERS Safety Report 7635789-1 (Version None)
Quarter: 2011Q3

REPORT INFORMATION
  Report Type: 
  Country: None (occurrence: None)
  Receive Date: 20110719
  Receipt Date: 20110711
  Transmission Date: 20111222
  Serious: Yes (Other)
  Sender: FDA-Public Use
  Company Number: 2011-IT-0024

PATIENT
  Sex: Female

DRUGS (1)
  1. GLYCERYL TRINITRATE (UNKNOWN) (GLYCERYL TRINITRATE (UNKNOWN)); FORMLUA [Suspect]
     Indication: PRODUCT USED FOR UNKNOWN INDICATION

REACTIONS (2)
  - LOSS OF CONSCIOUSNESS [None]
  - SYNCOPE [None]
